FAERS Safety Report 7794447-3 (Version None)
Quarter: 2011Q4

REPORT INFORMATION
  Report Type: 
  Country: None (occurrence: None)
  Receive Date: 20111004
  Receipt Date: 20110928
  Transmission Date: 20120403
  Serious: Yes (Other)
  Sender: FDA-Public Use
  Company Number: US-BRISTOL-MYERS SQUIBB COMPANY-16052557

PATIENT
  Age: 70 Year
  Sex: Female

DRUGS (1)
  1. ONGLYZA [Suspect]
     Route: 048
     Dates: start: 20110728, end: 20110901

REACTIONS (3)
  - PSYCHOTIC DISORDER [None]
  - ABNORMAL BEHAVIOUR [None]
  - HALLUCINATION [None]
